FAERS Safety Report 25467208 (Version 3)
Quarter: 2025Q4

REPORT INFORMATION
  Report Type: Report from Study
  Country: EU (occurrence: EU)
  Receive Date: 20250623
  Receipt Date: 20251128
  Transmission Date: 20260118
  Serious: Yes (Life-Threatening, Hospitalization, Other)
  Sender: NOVARTIS
  Company Number: EU-002147023-NVSC2025DE099505

PATIENT
  Age: 38 Year
  Sex: Male
  Weight: 98 kg

DRUGS (1)
  1. COSENTYX [Suspect]
     Active Substance: SECUKINUMAB
     Indication: Psoriasis
     Dosage: 300 MG, Q4W
     Route: 058
     Dates: start: 20240521

REACTIONS (2)
  - Spinal pain [Recovered/Resolved with Sequelae]
  - Hidradenitis [Unknown]

NARRATIVE: CASE EVENT DATE: 20240618
